FAERS Safety Report 24118972 (Version 1)
Quarter: 2024Q3

REPORT INFORMATION
  Report Type: Other
  Country: CN (occurrence: CN)
  Receive Date: 20240722
  Receipt Date: 20240722
  Transmission Date: 20241017
  Serious: Yes (Hospitalization, Other)
  Sender: ASTELLAS
  Company Number: CN-ASTELLAS-2024US020446

PATIENT
  Age: 13 Year
  Sex: Male
  Weight: 40 kg

DRUGS (2)
  1. PROGRAF [Suspect]
     Active Substance: TACROLIMUS
     Indication: Bone marrow transplant
     Dosage: 2 MG, TWICE DAILY (BID)
     Route: 048
     Dates: start: 20231003, end: 20240712
  2. PROGRAF [Suspect]
     Active Substance: TACROLIMUS
     Indication: Immunosuppression

REACTIONS (4)
  - Discomfort [Recovering/Resolving]
  - Hepatic function abnormal [Recovering/Resolving]
  - Transaminases increased [Recovering/Resolving]
  - Off label use [Unknown]

NARRATIVE: CASE EVENT DATE: 20231003
